FAERS Safety Report 9506527 (Version 1)
Quarter: 2013Q1

REPORT INFORMATION
  Report Type: Spontaneous
  Country: US (occurrence: None)
  Receive Date: 20130305
  Receipt Date: 20130305
  Transmission Date: 20140127
  Serious: Yes (Disabling)
  Sender: FDA-Public Use
  Company Number: 163-21880-12030173

PATIENT
  Age: 80 Year
  Sex: Male

DRUGS (6)
  1. REVLIMID (LENALIDOMIDE) (CAPSULES) [Suspect]
     Indication: PLASMA CELL MYELOMA
     Dosage: 15-10 MG DAILY, 1 IN 1 D, PO
     Dates: start: 20110211, end: 20120224
  2. VELCADE [Concomitant]
  3. ZOMETA (ZOLEDRONIC ACID) (UNKNOWN) [Concomitant]
  4. ACYCLOVIR (ACICLOVIR) (UNKNOWN) [Concomitant]
  5. COMPAZINE (PROCHLORPERAZINE EDISYLATE) (UNKNOWN) [Concomitant]
  6. ATARAX(HYDROXYZINE HYDROCHLORIDE) (UNKNOWN) [Concomitant]

REACTIONS (3)
  - Fatigue [None]
  - Rash erythematous [None]
  - Pruritus [None]
